FAERS Safety Report 20057105 (Version 1)
Quarter: 2021Q4

REPORT INFORMATION
  Report Type: Spontaneous
  Country: US (occurrence: US)
  Receive Date: 20211111
  Receipt Date: 20211111
  Transmission Date: 20220303
  Serious: Yes (Hospitalization, Other)
  Sender: FDA-Public Use
  Company Number: US-drreddys-SPO/USA/21/0143647

PATIENT
  Age: 17 Year
  Sex: Female
  Weight: 58.5 kg

DRUGS (3)
  1. ZENATANE [Suspect]
     Active Substance: ISOTRETINOIN
     Indication: Acne
     Dates: start: 20211015, end: 20211029
  2. ZENATANE [Suspect]
     Active Substance: ISOTRETINOIN
     Dosage: INCREASED THE DOSE TO 80 MG
  3. IBUPROFEN [Concomitant]
     Active Substance: IBUPROFEN
     Indication: Product used for unknown indication

REACTIONS (3)
  - Haematochezia [Unknown]
  - Colitis [Unknown]
  - Polyp [Unknown]
